FAERS Safety Report 9861845 (Version 2)
Quarter: 2014Q2

REPORT INFORMATION
  Report Type: Spontaneous
  Country: US (occurrence: US)
  Receive Date: 20140203
  Receipt Date: 20140606
  Transmission Date: 20141212
  Serious: No
  Sender: FDA-Public Use
  Company Number: US-PFIZER INC-2014028321

PATIENT
  Age: 76 Year
  Sex: Male

DRUGS (1)
  1. BOSULIF [Suspect]
     Indication: NEOPLASM MALIGNANT
     Dosage: 500 MG, 1X/DAY
     Route: 048
     Dates: start: 20131204, end: 20140104

REACTIONS (3)
  - Diarrhoea [Unknown]
  - Nausea [Unknown]
  - Malaise [Unknown]
